FAERS Safety Report 21979062 (Version 1)
Quarter: 2023Q1

REPORT INFORMATION
  Report Type: Spontaneous
  Country: US (occurrence: None)
  Receive Date: 20230210
  Receipt Date: 20230210
  Transmission Date: 20230417
  Serious: Yes (Other)
  Sender: FDA-Public Use
  Company Number: 2023A030907

PATIENT
  Age: 818 Month
  Sex: Female
  Weight: 78.9 kg

DRUGS (1)
  1. FULVESTRANT [Suspect]
     Active Substance: FULVESTRANT
     Indication: Breast cancer
     Route: 030
     Dates: start: 202108

REACTIONS (12)
  - Metastases to lung [Unknown]
  - Injection site pain [Unknown]
  - Injection site swelling [Unknown]
  - Injection site bruising [Unknown]
  - Sensory processing sensitivity [Unknown]
  - Body height decreased [Unknown]
  - Injection site nodule [Unknown]
  - Scar [Unknown]
  - Arthropathy [Unknown]
  - Bone disorder [Unknown]
  - Fatigue [Unknown]
  - Weight increased [Unknown]

NARRATIVE: CASE EVENT DATE: 20221201
